FAERS Safety Report 10235483 (Version 1)
Quarter: 2014Q2

REPORT INFORMATION
  Report Type: Spontaneous
  Country: JP (occurrence: JP)
  Receive Date: 20140613
  Receipt Date: 20140613
  Transmission Date: 20141212
  Serious: Yes (Hospitalization)
  Sender: FDA-Public Use
  Company Number: JP-SA-2014SA074132

PATIENT
  Age: 60 Year
  Sex: Male

DRUGS (5)
  1. CLOPIDOGREL BISULFATE [Suspect]
     Indication: ANTIPLATELET THERAPY
     Route: 065
     Dates: start: 2013
  2. ASPIRIN [Suspect]
     Indication: ANTIPLATELET THERAPY
     Route: 065
     Dates: start: 2013
  3. WARFARIN SODIUM [Suspect]
     Indication: ANTICOAGULANT THERAPY
     Route: 065
     Dates: start: 2013
  4. CILOSTAZOL [Concomitant]
  5. SARPOGRELATE [Concomitant]

REACTIONS (4)
  - Brain stem haemorrhage [Unknown]
  - Depressed level of consciousness [Unknown]
  - Bradycardia [Unknown]
  - Cardio-respiratory arrest [Recovered/Resolved]
